FAERS Safety Report 6765371-X (Version None)
Quarter: 2010Q2

REPORT INFORMATION
  Report Type: 
  Country: None (occurrence: None)
  Receive Date: 20100611
  Receipt Date: 20100602
  Transmission Date: 20101027
  Serious: Yes (Disabling, Other)
  Sender: FDA-Public Use
  Company Number: US-JNJFOC-20100601517

PATIENT
  Age: 49 Year
  Sex: Female
  Weight: 74.84 kg

DRUGS (7)
  1. LEVAQUIN [Suspect]
     Indication: BRONCHITIS
     Route: 048
  2. CYMBALTA [Concomitant]
     Indication: DEPRESSION
     Route: 048
  3. LIPITOR [Concomitant]
     Indication: BLOOD CHOLESTEROL INCREASED
     Route: 048
  4. TOPROL-XL [Concomitant]
     Indication: HYPERTENSION
     Route: 048
  5. LEVOXYL [Concomitant]
     Indication: THYROID HORMONE REPLACEMENT THERAPY
     Route: 048
  6. LORAZEPAM [Concomitant]
     Indication: ANXIETY
     Route: 048
  7. KLONOPIN [Concomitant]
     Indication: ANXIETY
     Route: 048

REACTIONS (5)
  - ARTHRALGIA [None]
  - MANIA [None]
  - OEDEMA PERIPHERAL [None]
  - PAIN IN EXTREMITY [None]
  - TENDONITIS [None]
